FAERS Safety Report 6738449-4 (Version None)
Quarter: 2010Q2

REPORT INFORMATION
  Report Type: 
  Country: None (occurrence: None)
  Receive Date: 20100524
  Receipt Date: 20100512
  Transmission Date: 20101027
  Serious: Yes (Other)
  Sender: FDA-Public Use
  Company Number: PE-ELI_LILLY_AND_COMPANY-PE201005003237

PATIENT
  Age: 62 Year
  Sex: Female

DRUGS (2)
  1. GEMZAR [Suspect]
     Dosage: 1400 MG/M2, DAYS 1, 8 AND 15
  2. CISPLATIN [Concomitant]

REACTIONS (1)
  - PSEUDOMEMBRANOUS COLITIS [None]
